FAERS Safety Report 7164665-6 (Version None)
Quarter: 2010Q4

REPORT INFORMATION
  Report Type: 
  Country: None (occurrence: None)
  Receive Date: 20101215
  Receipt Date: 20101203
  Transmission Date: 20110411
  Serious: Yes (Other)
  Sender: FDA-Public Use
  Company Number: US-MYLANLABS-2010S1022128

PATIENT
  Age: 55 Year
  Sex: Male

DRUGS (12)
  1. FENTANYL [Suspect]
     Indication: ARTHRITIS
     Dosage: CHANGED Q72H
     Route: 062
     Dates: start: 20101201, end: 20101202
  2. PROPOXYPHENE HYDROCHLORIDE [Suspect]
     Indication: ARTHRITIS
     Route: 048
     Dates: start: 20080101, end: 20101202
  3. PRISTIQ [Concomitant]
     Indication: DEPRESSION
     Route: 048
  4. VITAMIN D [Concomitant]
  5. FERROUS SULFATE [Concomitant]
     Indication: IRON DEFICIENCY
     Route: 048
  6. AMLODIPINE [Concomitant]
     Indication: BLOOD PRESSURE INCREASED
     Route: 048
  7. INDERAL [Concomitant]
     Indication: BLOOD PRESSURE INCREASED
     Route: 048
  8. LISINOPRIL [Concomitant]
     Indication: BLOOD PRESSURE INCREASED
     Route: 048
  9. AGGRENOX [Concomitant]
     Dosage: FOR STROKE LIKE SYMPTOMS DUE TO DARVON.
  10. MIRAPEX [Concomitant]
     Indication: RESTLESS LEGS SYNDROME
     Route: 048
  11. OMEPRAZOLE [Concomitant]
  12. REMERON [Concomitant]
     Route: 048

REACTIONS (8)
  - DYSPNOEA [None]
  - FEELING ABNORMAL [None]
  - HEART RATE DECREASED [None]
  - ILLOGICAL THINKING [None]
  - LOSS OF CONSCIOUSNESS [None]
  - POTENTIATING DRUG INTERACTION [None]
  - RESPIRATORY ARREST [None]
  - WRONG TECHNIQUE IN DRUG USAGE PROCESS [None]
